FAERS Safety Report 10302487 (Version 3)
Quarter: 2014Q3

REPORT INFORMATION
  Report Type: Spontaneous
  Country: US (occurrence: None)
  Receive Date: 20140709
  Receipt Date: 20140922
  Transmission Date: 20150326
  Serious: Yes (Other)
  Sender: FDA-Public Use
  Company Number: 2014US003324

PATIENT
  Age: 50 Year
  Sex: Female

DRUGS (1)
  1. ICLUSIG [Suspect]
     Active Substance: PONATINIB
     Indication: CHRONIC MYELOID LEUKAEMIA
     Route: 048

REACTIONS (7)
  - Headache [None]
  - Limb operation [None]
  - Cardiac flutter [None]
  - Haemoglobin decreased [None]
  - Diarrhoea [None]
  - Nausea [None]
  - Vein disorder [None]

NARRATIVE: CASE EVENT DATE: 20140528
